FAERS Safety Report 19485817 (Version 1)
Quarter: 2021Q3

REPORT INFORMATION
  Report Type: Spontaneous
  Country: GB (occurrence: GB)
  Receive Date: 20210702
  Receipt Date: 20210702
  Transmission Date: 20211014
  Serious: Yes (Other)
  Sender: FDA-Public Use
  Company Number: GB-ACCORD-230132

PATIENT
  Age: 31 Year
  Sex: Female
  Weight: 67.58 kg

DRUGS (1)
  1. SERTRALINE [Suspect]
     Active Substance: SERTRALINE HYDROCHLORIDE
     Indication: ANXIETY
     Dosage: 50 MG
     Route: 048

REACTIONS (3)
  - Gastrooesophageal reflux disease [Recovering/Resolving]
  - Medication error [Unknown]
  - Burn oesophageal [Recovering/Resolving]

NARRATIVE: CASE EVENT DATE: 20210617
